FAERS Safety Report 10614532 (Version 2)
Quarter: 2014Q4

REPORT INFORMATION
  Report Type: Report from Study
  Country: CR (occurrence: CR)
  Receive Date: 20141130
  Receipt Date: 20141211
  Transmission Date: 20150529
  Serious: Yes (Other)
  Sender: FDA-Public Use
  Company Number: PHHY2014CR156067

PATIENT
  Sex: Female
  Weight: 48 kg

DRUGS (1)
  1. ACLASTA [Suspect]
     Active Substance: ZOLEDRONIC ACID
     Indication: OSTEOPENIA
     Dosage: 5 MG, UNK
     Route: 042
     Dates: start: 201410

REACTIONS (14)
  - Abasia [Unknown]
  - Decreased appetite [Recovered/Resolved]
  - Thirst [Recovered/Resolved]
  - Bone pain [Recovered/Resolved]
  - Underweight [Unknown]
  - Nausea [Recovered/Resolved]
  - Dysstasia [Recovered/Resolved]
  - Vision blurred [Recovered/Resolved]
  - Visual field defect [Unknown]
  - Body temperature increased [Unknown]
  - Malaise [Unknown]
  - Angina pectoris [Recovered/Resolved]
  - Pain in extremity [Recovered/Resolved]
  - Pyrexia [Recovered/Resolved]
